FAERS Safety Report 7717364-3 (Version None)
Quarter: 2011Q3

REPORT INFORMATION
  Report Type: 
  Country: None (occurrence: None)
  Receive Date: 20110824
  Receipt Date: 20110811
  Transmission Date: 20111222
  Serious: Yes (Other)
  Sender: FDA-Public Use
  Company Number: 1000021892

PATIENT
  Age: 56 Year
  Sex: Female
  Weight: 76.2 kg

DRUGS (1)
  1. ROFLUMILAST (ROFLUMILAST) (TABLETS) [Suspect]
     Indication: CHRONIC OBSTRUCTIVE PULMONARY DISEASE
     Dosage: 500 MCG (500 MCG,1 IN 1 D), ORAL STOPPED
     Route: 048

REACTIONS (4)
  - DIZZINESS [None]
  - SYNCOPE [None]
  - DIARRHOEA [None]
  - NAUSEA [None]
